FAERS Safety Report 14324751 (Version 1)
Quarter: 2017Q4

REPORT INFORMATION
  Report Type: Spontaneous
  Country: RU (occurrence: RU)
  Receive Date: 20171226
  Receipt Date: 20171226
  Transmission Date: 20180321
  Serious: Yes (Other)
  Sender: FDA-Public Use
  Company Number: RU-ASTRAZENECA-2017SF31372

PATIENT
  Age: 56 Year
  Sex: Female
  Weight: 90 kg

DRUGS (4)
  1. BRILINTA [Suspect]
     Active Substance: TICAGRELOR
     Indication: ANGINA UNSTABLE
     Route: 048
     Dates: start: 20170917
  2. THROMBO ASS [Concomitant]
     Active Substance: ASPIRIN
  3. TULIP (ATORVASTATIN CALCIUM) [Concomitant]
     Active Substance: ATORVASTATIN CALCIUM
  4. CONCOR [Concomitant]
     Active Substance: BISOPROLOL FUMARATE

REACTIONS (6)
  - Oedema peripheral [Recovered/Resolved]
  - Face oedema [Recovered/Resolved]
  - Epistaxis [Recovered/Resolved]
  - Erythema [Recovered/Resolved]
  - Myocardial infarction [Recovered/Resolved]
  - Tooth abscess [Recovered/Resolved]

NARRATIVE: CASE EVENT DATE: 20171120
